FAERS Safety Report 4330317-0 (Version None)
Quarter: 2004Q1

REPORT INFORMATION
  Report Type: 
  Country: None (occurrence: None)
  Receive Date: 20040329
  Receipt Date: 20040316
  Transmission Date: 20041129
  Serious: Yes (Other)
  Sender: FDA-Public Use
  Company Number: 2004018226

PATIENT
  Age: 68 Year
  Sex: Female

DRUGS (3)
  1. SULPERAZON (CEFOPERAZONE, SULBACTAM) [Suspect]
     Indication: PNEUMONIA
     Dosage: 2 GRAM (DAILY), INTRAVENOUS
     Route: 042
     Dates: start: 20040312, end: 20040315
  2. CARBAMAZEPINE [Suspect]
     Indication: EPILEPSY
     Dosage: 500 MG, ORAL
     Route: 048
     Dates: start: 20030101, end: 20040315
  3. VALPROATE SODIUM [Suspect]
     Indication: EPILEPSY
     Dosage: 1200 MG, ORAL
     Route: 048
     Dates: start: 20030101, end: 20040315

REACTIONS (6)
  - ALANINE AMINOTRANSFERASE INCREASED [None]
  - ASPARTATE AMINOTRANSFERASE INCREASED [None]
  - BLOOD ALKALINE PHOSPHATASE INCREASED [None]
  - BLOOD LACTATE DEHYDROGENASE INCREASED [None]
  - CONVULSION [None]
  - LOSS OF CONSCIOUSNESS [None]
